FAERS Safety Report 4305803-X (Version None)
Quarter: 2004Q1

REPORT INFORMATION
  Report Type: 
  Country: None (occurrence: None)
  Receive Date: 20040225
  Receipt Date: 20040213
  Transmission Date: 20041129
  Serious: Yes (Other)
  Sender: FDA-Public Use
  Company Number: US-JNJFOC-20040204097

PATIENT
  Age: 32 Year
  Sex: Female
  Weight: 116.1208 kg

DRUGS (3)
  1. HALDOL DECANOATE (HALOPERIDOL DECANOATE) UNSPECIFIED [Suspect]
     Indication: SCHIZOPHRENIA
     Dosage: INTRA-MUSCULAR
     Route: 030
     Dates: start: 20000101, end: 20020601
  2. GEODON [Concomitant]
  3. DEPAKOTE [Concomitant]

REACTIONS (1)
  - WEIGHT INCREASED [None]
